FAERS Safety Report 6945938-6 (Version None)
Quarter: 2010Q3

REPORT INFORMATION
  Report Type: 
  Country: None (occurrence: None)
  Receive Date: 20100824
  Receipt Date: 20100816
  Transmission Date: 20110219
  Serious: Yes (Hospitalization)
  Sender: FDA-Public Use
  Company Number: 2010SP044366

PATIENT
  Sex: Male

DRUGS (2)
  1. DIPROSPAN (BETAMETHASONE SODIUM PHOSPHATE/DIPROPIONATE) (BETAMETHASONE [Suspect]
     Indication: SEASONAL ALLERGY
     Dosage: 1 ML; ONCE; IA
     Route: 014
     Dates: start: 20070607
  2. DEPO-MEDROL [Suspect]
     Indication: SEASONAL ALLERGY
     Dosage: 2 ML;ONCE; IA
     Route: 014
     Dates: start: 20070604

REACTIONS (2)
  - BIPOLAR I DISORDER [None]
  - SELF ESTEEM DECREASED [None]
